FAERS Safety Report 4817899-7 (Version None)
Quarter: 2005Q3

REPORT INFORMATION
  Report Type: 
  Country: None (occurrence: None)
  Receive Date: 20050929
  Receipt Date: 20050622
  Transmission Date: 20060218
  Serious: No
  Sender: FDA-Public Use
  Company Number: 05P-163-0303825-00

PATIENT
  Age: 46 Year
  Sex: Female
  Weight: 84.369 kg

DRUGS (2)
  1. HUMIRA [Suspect]
     Indication: RHEUMATOID ARTHRITIS
     Dosage: 40 MG, 1 IN 2 WK, SUBCUTANEOUS
     Route: 058
     Dates: start: 20040601, end: 20050422
  2. CELECOXIB [Concomitant]

REACTIONS (2)
  - DRUG INEFFECTIVE [None]
  - PRURITUS GENERALISED [None]
